FAERS Safety Report 8089385-5 (Version None)
Quarter: 2012Q1

REPORT INFORMATION
  Report Type: 
  Country: None (occurrence: None)
  Receive Date: 20120128
  Receipt Date: 20110629
  Transmission Date: 20120608
  Serious: No
  Sender: FDA-Public Use
  Company Number: US-ABBOTT-11P-163-0835848-00

PATIENT
  Sex: Female
  Weight: 47.67 kg

DRUGS (6)
  1. XANAX [Concomitant]
     Indication: CROHN'S DISEASE
  2. HUMIRA [Suspect]
     Indication: CROHN'S DISEASE
     Route: 058
     Dates: start: 20101212
  3. XANAX [Concomitant]
     Indication: INSOMNIA
  4. XANAX [Concomitant]
     Indication: ANXIETY
     Dosage: PRN
     Route: 048
     Dates: start: 20101101
  5. IMURAN [Concomitant]
     Indication: CROHN'S DISEASE
     Route: 048
  6. PRILOSEC [Concomitant]
     Indication: CROHN'S DISEASE
     Route: 048

REACTIONS (7)
  - FLUSHING [None]
  - CHEST PAIN [None]
  - INSOMNIA [None]
  - FATIGUE [None]
  - HYPERHIDROSIS [None]
  - HOT FLUSH [None]
  - PALPITATIONS [None]
